FAERS Safety Report 17750195 (Version 1)
Quarter: 2020Q2

REPORT INFORMATION
  Report Type: Report from Study
  Country: HN (occurrence: HN)
  Receive Date: 20200506
  Receipt Date: 20200506
  Transmission Date: 20200714
  Serious: Yes (Other)
  Sender: FDA-Public Use
  Company Number: HN-EISAI MEDICAL RESEARCH-EC-2020-074140

PATIENT
  Age: 74 Year
  Sex: Female

DRUGS (2)
  1. ERANZ [Suspect]
     Active Substance: DONEPEZIL HYDROCHLORIDE
     Indication: PRODUCT USED FOR UNKNOWN INDICATION
     Route: 048
  2. ERANZ [Suspect]
     Active Substance: DONEPEZIL HYDROCHLORIDE
     Dosage: HALF A PILL A DAY OF THE 10 MG TABLET
     Route: 048

REACTIONS (1)
  - Seizure [Unknown]
